FAERS Safety Report 11788737 (Version 1)
Quarter: 2015Q4

REPORT INFORMATION
  Report Type: Spontaneous
  Country: US (occurrence: None)
  Receive Date: 20151130
  Receipt Date: 20151130
  Transmission Date: 20160305
  Serious: Yes (Hospitalization, Disabling)
  Sender: FDA-Public Use
  Company Number: None

PATIENT
  Age: 72 Year
  Sex: Male
  Weight: 81.65 kg

DRUGS (10)
  1. ETODOLAC (LODINE) 200MG NDC 51672-4016-01 [Suspect]
     Active Substance: ETODOLAC
     Indication: MUSCULOSKELETAL PAIN
     Route: 048
     Dates: start: 20150318, end: 20150424
  2. LOPRESSOR [Concomitant]
     Active Substance: METOPROLOL TARTRATE
  3. FOLIC ACID. [Concomitant]
     Active Substance: FOLIC ACID
  4. GLIPIZIDE. [Concomitant]
     Active Substance: GLIPIZIDE
  5. FLOMAX [Concomitant]
     Active Substance: TAMSULOSIN HYDROCHLORIDE
  6. LIPITOR [Concomitant]
     Active Substance: ATORVASTATIN CALCIUM
  7. PLAVIX [Concomitant]
     Active Substance: CLOPIDOGREL BISULFATE
  8. GLUCOPHAGE [Concomitant]
     Active Substance: METFORMIN HYDROCHLORIDE
  9. TRAZODONE [Concomitant]
     Active Substance: TRAZODONE HYDROCHLORIDE
  10. ZOLOFT [Concomitant]
     Active Substance: SERTRALINE HYDROCHLORIDE

REACTIONS (2)
  - Cerebrovascular accident [None]
  - Hemiplegia [None]

NARRATIVE: CASE EVENT DATE: 20150424
